FAERS Safety Report 9459132 (Version 2)
Quarter: 2013Q3

REPORT INFORMATION
  Report Type: Spontaneous
  Country: DK (occurrence: DK)
  Receive Date: 20130814
  Receipt Date: 20130919
  Transmission Date: 20140515
  Serious: Yes (Other)
  Sender: FDA-Public Use
  Company Number: DK-BAXTER-2013BAX031727

PATIENT
  Sex: Female

DRUGS (5)
  1. SENDOXAN [Suspect]
     Indication: BREAST CANCER
     Dosage: X 3
     Route: 065
  2. HERCEPTIN [Suspect]
     Indication: BREAST CANCER
     Route: 065
  3. EPIRUBICIN [Suspect]
     Indication: BREAST CANCER
     Dosage: X3
     Route: 065
  4. TAXOTERE [Suspect]
     Indication: BREAST CANCER
     Dosage: X 3
     Route: 065
  5. TAMOXIFEN [Suspect]
     Indication: BREAST CANCER
     Route: 065

REACTIONS (1)
  - Malignant neoplasm progression [Unknown]
